FAERS Safety Report 23083231 (Version 1)
Quarter: 2023Q4

REPORT INFORMATION
  Report Type: Spontaneous
  Country: US (occurrence: None)
  Receive Date: 20231017
  Receipt Date: 20231017
  Transmission Date: 20240109
  Serious: Yes (Hospitalization)
  Sender: FDA-Public Use
  Company Number: None

PATIENT
  Age: 82 Year
  Sex: Male

DRUGS (1)
  1. LISINOPRIL [Suspect]
     Active Substance: LISINOPRIL
     Dates: start: 20220819, end: 20230208

REACTIONS (7)
  - Hypoaesthesia [None]
  - Dysarthria [None]
  - Facial paralysis [None]
  - Swelling face [None]
  - Lip swelling [None]
  - Transient ischaemic attack [None]
  - Bell^s palsy [None]

NARRATIVE: CASE EVENT DATE: 20230203
